FAERS Safety Report 9233234 (Version 1)
Quarter: 2013Q2

REPORT INFORMATION
  Report Type: Spontaneous
  Country: US (occurrence: US)
  Receive Date: 20130416
  Receipt Date: 20130416
  Transmission Date: 20140414
  Serious: Yes (Other)
  Sender: FDA-Public Use
  Company Number: US-BANPHARM-20120159

PATIENT
  Age: 51 Year
  Sex: Female
  Weight: 27.27 kg

DRUGS (2)
  1. ALEVE LIQUID GELS 220 MG [Suspect]
     Indication: BACK PAIN
     Dosage: 2DF, AS NEEDED,
     Route: 048
     Dates: start: 20120901
  2. CRESTOR [Concomitant]

REACTIONS (2)
  - Hypersensitivity [Recovered/Resolved]
  - Wrong technique in drug usage process [Recovered/Resolved]
